FAERS Safety Report 24155397 (Version 1)
Quarter: 2024Q3

REPORT INFORMATION
  Report Type: Spontaneous
  Country: GB (occurrence: GB)
  Receive Date: 20240731
  Receipt Date: 20240731
  Transmission Date: 20241017
  Serious: Yes (Hospitalization, Other)
  Sender: CELLTRION
  Company Number: GB-CELLTRION INC.-2024GB018150

PATIENT

DRUGS (2)
  1. YUFLYMA [Suspect]
     Active Substance: ADALIMUMAB-AATY
     Indication: Colitis ulcerative
     Dosage: 40 MG PEN PK2
     Route: 058
     Dates: start: 202404
  2. YUFLYMA [Suspect]
     Active Substance: ADALIMUMAB-AATY
     Dosage: 40 MG PEN PK2, PATIENT LAST TAKEN PRESCRIPTION ON THE 6TH JULY
     Route: 058

REACTIONS (5)
  - Colitis [Unknown]
  - Dyschezia [Unknown]
  - Haemorrhage [Unknown]
  - Pharyngitis [Unknown]
  - Product dose omission issue [Unknown]
